FAERS Safety Report 11092752 (Version 2)
Quarter: 2015Q2

REPORT INFORMATION
  Report Type: Report from Study
  Country: FR (occurrence: None)
  Receive Date: 20150504
  Receipt Date: 20150518
  Transmission Date: 20150821
  Serious: Yes (Hospitalization, Other)
  Sender: FDA-Public Use
  Company Number: FR2015GSK028555

PATIENT
  Age: 54 Year
  Sex: Male

DRUGS (5)
  1. DARUNAVIR (DARUNAVIR) [Concomitant]
     Active Substance: DARUNAVIR
  2. RALTEGRAVIR (RALTEGRAVIR) [Concomitant]
     Active Substance: RALTEGRAVIR
  3. MARAVIROC (MARAVIROC) [Suspect]
     Active Substance: MARAVIROC
     Indication: HIV INFECTION
     Dosage: 300 MG, QD
     Dates: start: 20100120
  4. RITONAVIR (RITONAVIR) [Concomitant]
     Active Substance: RITONAVIR
  5. TRUVADA [Concomitant]
     Active Substance: EMTRICITABINE\TENOFOVIR DISOPROXIL FUMARATE

REACTIONS (1)
  - Basal cell carcinoma [None]

NARRATIVE: CASE EVENT DATE: 201203
